FAERS Safety Report 10736774 (Version 3)
Quarter: 2015Q2

REPORT INFORMATION
  Report Type: Spontaneous
  Country: SE (occurrence: SE)
  Receive Date: 20150126
  Receipt Date: 20150416
  Transmission Date: 20150821
  Serious: Yes (Other)
  Sender: FDA-Public Use
  Company Number: SE-GALDERMA-SE15000169

PATIENT
  Age: 20 Year
  Sex: Female

DRUGS (1)
  1. EPIDUO [Suspect]
     Active Substance: ADAPALENE\BENZOYL PEROXIDE
     Indication: ACNE
     Dosage: 0.1%-2.5%
     Route: 061
     Dates: start: 20150101, end: 20150105

REACTIONS (9)
  - Skin hyperpigmentation [Recovered/Resolved]
  - Dermatitis contact [Recovering/Resolving]
  - Chemical injury [Recovering/Resolving]
  - Sleep disorder [Unknown]
  - Erythema [Recovered/Resolved]
  - Pain of skin [Recovering/Resolving]
  - Skin exfoliation [Recovering/Resolving]
  - Pruritus [Recovering/Resolving]
  - Dry skin [Recovering/Resolving]

NARRATIVE: CASE EVENT DATE: 20150105
